FAERS Safety Report 18218917 (Version 3)
Quarter: 2020Q4

REPORT INFORMATION
  Report Type: Spontaneous
  Country: US (occurrence: US)
  Receive Date: 20200901
  Receipt Date: 20201214
  Transmission Date: 20210113
  Serious: Yes (Other)
  Sender: FDA-Public Use
  Company Number: US-SA-2020SA228290

PATIENT

DRUGS (2)
  1. HUMULIN R [Concomitant]
     Active Substance: INSULIN HUMAN
     Dosage: UNK
     Route: 065
  2. LANTUS SOLOSTAR [Suspect]
     Active Substance: INSULIN GLARGINE
     Indication: DIABETES MELLITUS
     Dosage: 34 IU, QD
     Route: 065

REACTIONS (5)
  - Diabetes mellitus inadequate control [Unknown]
  - Incorrect dose administered by device [Unknown]
  - Visual impairment [Unknown]
  - Device operational issue [Unknown]
  - Product dose omission issue [Unknown]
